FAERS Safety Report 13575587 (Version 3)
Quarter: 2017Q4

REPORT INFORMATION
  Report Type: Report from Study
  Country: None (occurrence: US)
  Receive Date: 20170524
  Receipt Date: 20171226
  Transmission Date: 20180320
  Serious: Yes (Other)
  Sender: FDA-Public Use
  Company Number: US-ABBVIE-17K-163-1984240-00

PATIENT
  Sex: Male
  Weight: 76.27 kg

DRUGS (2)
  1. HUMIRA [Suspect]
     Active Substance: ADALIMUMAB
     Indication: COLITIS ULCERATIVE
     Route: 058
     Dates: start: 201702, end: 20170506
  2. IMURAN [Concomitant]
     Active Substance: AZATHIOPRINE
     Indication: COLITIS ULCERATIVE

REACTIONS (2)
  - Anal fistula [Recovered/Resolved]
  - Anal abscess [Not Recovered/Not Resolved]

NARRATIVE: CASE EVENT DATE: 2017
